FAERS Safety Report 24011318 (Version 3)
Quarter: 2024Q3

REPORT INFORMATION
  Report Type: Spontaneous
  Country: JP (occurrence: JP)
  Receive Date: 20240625
  Receipt Date: 20240802
  Transmission Date: 20241017
  Serious: Yes (Other)
  Sender: BAYER
  Company Number: JP-BAYER-2024A091044

PATIENT
  Age: 73 Year
  Sex: Male

DRUGS (2)
  1. NUBEQA [Suspect]
     Active Substance: DAROLUTAMIDE
     Indication: Hormone-dependent prostate cancer
     Dosage: DAILY DOSE 1200 MG
     Dates: start: 2023
  2. DOCETAXEL [Suspect]
     Active Substance: DOCETAXEL\DOCETAXEL ANHYDROUS
     Indication: Hormone-dependent prostate cancer
     Dosage: 75 MG/M2, Q3WK
     Dates: start: 2023

REACTIONS (4)
  - Hormone-dependent prostate cancer [None]
  - Metastases to liver [None]
  - Febrile neutropenia [None]
  - Prostatic specific antigen increased [None]

NARRATIVE: CASE EVENT DATE: 20230101
